FAERS Safety Report 17384857 (Version 1)
Quarter: 2020Q1

REPORT INFORMATION
  Report Type: Spontaneous
  Country: US (occurrence: US)
  Receive Date: 20200206
  Receipt Date: 20200206
  Transmission Date: 20200409
  Serious: No
  Sender: FDA-Public Use
  Company Number: US-ABBVIE-19K-163-2896329-00

PATIENT
  Age: 73 Year
  Sex: Female
  Weight: 59.93 kg

DRUGS (8)
  1. HUMIRA [Suspect]
     Active Substance: ADALIMUMAB
     Indication: RHEUMATOID ARTHRITIS
     Route: 058
  2. VASOMAX [Concomitant]
     Indication: OSTEOPENIA
  3. PRESERVISION [Concomitant]
     Active Substance: MINERALS\VITAMINS
     Indication: MACULAR DEGENERATION
     Dosage: 2 PER DAY
     Dates: start: 2017
  4. PROAIR HFA [Concomitant]
     Active Substance: ALBUTEROL SULFATE
     Indication: WHEEZING
  5. ANORAN [Concomitant]
     Indication: BRONCHITIS CHRONIC
     Dosage: 25MCG ONCE A DAY
  6. CALCIUM PLUS VITAMIN D3 [Concomitant]
     Indication: SPINAL DISORDER
     Dosage: 1 A DAY, 600MG CALCIUM, 800IU D3
  7. VASOMAX [Concomitant]
     Indication: RHEUMATOID ARTHRITIS
  8. IBUPROFEN. [Concomitant]
     Active Substance: IBUPROFEN
     Indication: PRODUCT USED FOR UNKNOWN INDICATION
     Dosage: FOUR TIMES A DAY
     Route: 065

REACTIONS (10)
  - Nerve injury [Unknown]
  - Bronchitis chronic [Unknown]
  - Therapeutic product effect decreased [Not Recovered/Not Resolved]
  - Spinal disorder [Unknown]
  - Pain in extremity [Unknown]
  - Dysstasia [Unknown]
  - Osteopenia [Unknown]
  - Compression fracture [Unknown]
  - Wheezing [Unknown]
  - Arthralgia [Unknown]

NARRATIVE: CASE EVENT DATE: 2018
